FAERS Safety Report 7244380-0 (Version None)
Quarter: 2011Q1

REPORT INFORMATION
  Report Type: 
  Country: None (occurrence: None)
  Receive Date: 20110125
  Receipt Date: 20110117
  Transmission Date: 20110831
  Serious: Yes (Other)
  Sender: FDA-Public Use
  Company Number: FR-ALLERGAN-1100950US

PATIENT
  Age: 78 Year
  Sex: Male

DRUGS (10)
  1. TROSPIUM CHLORIDE [Suspect]
     Indication: PRODUCT USED FOR UNKNOWN INDICATION
     Dosage: UNK
     Route: 048
     Dates: start: 20101013, end: 20101111
  2. CRESTOR [Concomitant]
     Dosage: 10 MG, QD
     Route: 048
  3. COZAAR [Concomitant]
     Indication: HYPERTENSION
     Dosage: 50 MG, QD
     Route: 048
  4. RISPERDAL [Concomitant]
     Dosage: 0.5 MG, BID
     Route: 048
  5. XANAX [Concomitant]
     Dosage: 0.25 MG, TID
     Route: 048
  6. KARDEGIC [Concomitant]
     Dosage: 160 MG, QD
     Route: 048
  7. IMODIUM [Concomitant]
     Indication: DIARRHOEA
     Dosage: 2 MG, TID
     Route: 048
     Dates: start: 20101001
  8. EFFEXOR [Concomitant]
     Dosage: 75 MG, QD
     Route: 048
  9. SMECTA [Concomitant]
     Indication: DIARRHOEA
     Dosage: UNK
     Route: 048
     Dates: start: 20101001
  10. NEXIUM [Concomitant]
     Dosage: 40 MG, QD
     Route: 048

REACTIONS (1)
  - ERYTHEMA MULTIFORME [None]
